FAERS Safety Report 10438479 (Version 2)
Quarter: 2014Q4

REPORT INFORMATION
  Report Type: Spontaneous
  Country: US (occurrence: US)
  Receive Date: 20140908
  Receipt Date: 20141205
  Transmission Date: 20150528
  Serious: No
  Sender: FDA-Public Use
  Company Number: US-BRISTOL-MYERS SQUIBB COMPANY-20565842

PATIENT
  Age: 57 Year
  Sex: Male
  Weight: 74.37 kg

DRUGS (4)
  1. ABILIFY [Suspect]
     Active Substance: ARIPIPRAZOLE
     Indication: DEPRESSION
     Dosage: 20MG RECEIVED ON 24JUN13:REDUCED TO 10MG DAILY ON 15JUL14
     Route: 048
  2. REMERON [Concomitant]
     Active Substance: MIRTAZAPINE
  3. ABILIFY [Suspect]
     Active Substance: ARIPIPRAZOLE
     Indication: ANXIETY
     Dosage: 20MG RECEIVED ON 24JUN13:REDUCED TO 10MG DAILY ON 15JUL14
     Route: 048
  4. COGENTIN [Concomitant]
     Active Substance: BENZTROPINE MESYLATE

REACTIONS (2)
  - Drug dispensing error [Unknown]
  - Underdose [Unknown]
